FAERS Safety Report 9275481 (Version 4)
Quarter: 2013Q3

REPORT INFORMATION
  Report Type: Spontaneous
  Country: US (occurrence: US)
  Receive Date: 20130507
  Receipt Date: 20130801
  Transmission Date: 20140515
  Serious: Yes (Death)
  Sender: FDA-Public Use
  Company Number: PHEH2013US009905

PATIENT
  Age: 66 Year
  Sex: Male
  Weight: 86.17 kg

DRUGS (5)
  1. GILENYA [Suspect]
     Indication: RELAPSING-REMITTING MULTIPLE SCLEROSIS
     Dosage: 1 DF, QD
     Route: 048
     Dates: start: 201202, end: 201209
  2. RANITIDINE [Concomitant]
     Dosage: 150 MG, BID
     Route: 048
  3. SIMVASTATIN [Concomitant]
     Dosage: 20 MG, QD
  4. AMANTADINE [Concomitant]
     Dosage: 200 MG, BID
  5. CARBAMAZEPINE [Concomitant]
     Dosage: 400 MG, TID

REACTIONS (3)
  - Death [Fatal]
  - Confusional state [Unknown]
  - Drug ineffective [Unknown]
